FAERS Safety Report 5510839-7 (Version None)
Quarter: 2007Q4

REPORT INFORMATION
  Report Type: 
  Country: None (occurrence: None)
  Receive Date: 20071107
  Receipt Date: 20071026
  Transmission Date: 20080405
  Serious: Yes (Hospitalization)
  Sender: FDA-Public Use
  Company Number: 145928USA

PATIENT
  Age: 53 Year
  Sex: Female

DRUGS (6)
  1. COPAXONE [Suspect]
     Indication: MULTIPLE SCLEROSIS
     Dosage: 20 MG SUBCUTANEOUS
     Route: 058
     Dates: start: 20030324
  2. AZATHIOPRINE [Concomitant]
  3. BACLOFEN [Concomitant]
  4. CARBAMAZEPINE [Concomitant]
  5. LISINOPRIL [Concomitant]
  6. HYDROCHLOROTHIAZIDE [Concomitant]

REACTIONS (3)
  - ANXIETY [None]
  - CONVULSION [None]
  - GLIOBLASTOMA MULTIFORME [None]
